FAERS Safety Report 6199403-7 (Version None)
Quarter: 2009Q2

REPORT INFORMATION
  Report Type: 
  Country: None (occurrence: None)
  Receive Date: 20090522
  Receipt Date: 20090513
  Transmission Date: 20091009
  Serious: Yes (Other)
  Sender: FDA-Public Use
  Company Number: TR-B.I. PHARMACEUTICALS,INC./RIDGEFIELD-2009-DE-03644GD

PATIENT
  Sex: Female

DRUGS (2)
  1. IPRATROPIUM BROMIDE [Suspect]
     Indication: BRONCHOPULMONARY DYSPLASIA
     Dosage: 0.16 MG/KG
     Route: 055
  2. ALBUTEROL [Suspect]
     Indication: BRONCHOPULMONARY DYSPLASIA
     Dosage: 0.2 MG/KG/DOSE AT 4 - 6 HOUR INTERVALS

REACTIONS (2)
  - OXYGEN SATURATION DECREASED [None]
  - THERAPEUTIC PRODUCT INEFFECTIVE [None]
